FAERS Safety Report 14010848 (Version 1)
Quarter: 2017Q3

REPORT INFORMATION
  Report Type: Spontaneous
  Country: US (occurrence: None)
  Receive Date: 20170925
  Receipt Date: 20170925
  Transmission Date: 20171128
  Serious: Yes (Hospitalization)
  Sender: FDA-Public Use
  Company Number: None

PATIENT
  Age: 66 Year
  Sex: Male
  Weight: 69.2 kg

DRUGS (17)
  1. NIVOLUMAB [Suspect]
     Active Substance: NIVOLUMAB
     Route: 042
     Dates: start: 20170829, end: 20170911
  2. SODIUM CHLORIDE. [Concomitant]
     Active Substance: SODIUM CHLORIDE
  3. PRILOSEC [Concomitant]
     Active Substance: OMEPRAZOLE MAGNESIUM
  4. GUIAFENESIN (MUCINEX) [Concomitant]
  5. ENTERIC CONTRAST [Concomitant]
  6. ZYPREXA [Concomitant]
     Active Substance: OLANZAPINE
  7. BUDESONIDE-FORRMOTEROL (SYMBICORT) [Concomitant]
  8. LEVAQUIN [Concomitant]
     Active Substance: LEVOFLOXACIN
  9. IPRATROPIUM-ALBUTEROL (DUONEB) [Concomitant]
  10. IV CONTRAST [Concomitant]
     Active Substance: UNSPECIFIED INGREDIENT
  11. SINGULAIR [Concomitant]
     Active Substance: MONTELUKAST SODIUM
  12. SAW PALMETTO [Concomitant]
     Active Substance: HERBALS\SAW PALMETTO
  13. MULTIVITAMIN [Concomitant]
     Active Substance: VITAMINS
  14. OXYMETAZOLINE (AFRIN, OXYMETAZOLINE) [Concomitant]
  15. PHENERGAN [Concomitant]
     Active Substance: PROMETHAZINE HYDROCHLORIDE
  16. L. ACIDOPHILUS/BIFIDO LONGUM (PROBIOTIC PEARLS) [Concomitant]
  17. FLUTICASONE (FLONASE) [Concomitant]

REACTIONS (1)
  - Chronic obstructive pulmonary disease [None]

NARRATIVE: CASE EVENT DATE: 20170923
